FAERS Safety Report 8602429-4 (Version None)
Quarter: 2012Q3

REPORT INFORMATION
  Report Type: 
  Country: None (occurrence: None)
  Receive Date: 20120817
  Receipt Date: 20120813
  Transmission Date: 20120928
  Serious: Yes (Hospitalization)
  Sender: FDA-Public Use
  Company Number: US-ROCHE-1101989

PATIENT
  Age: 67 Year
  Sex: Male
  Weight: 83.536 kg

DRUGS (4)
  1. XELODA [Suspect]
     Route: 048
     Dates: start: 20120813
  2. GEMCITABINE HYDROCHLORIDE [Concomitant]
     Indication: PANCREATIC CARCINOMA
     Route: 042
     Dates: start: 20120701, end: 20120727
  3. GEMCITABINE HYDROCHLORIDE [Concomitant]
     Route: 042
     Dates: start: 20120813
  4. XELODA [Suspect]
     Indication: PANCREATIC CARCINOMA
     Route: 048
     Dates: start: 20120723, end: 20120727

REACTIONS (2)
  - BILE DUCT STENT INSERTION [None]
  - BILE DUCT OBSTRUCTION [None]
